FAERS Safety Report 8925490 (Version 1)
Quarter: 2012Q4

REPORT INFORMATION
  Report Type: Spontaneous
  Country: US (occurrence: None)
  Receive Date: 20121126
  Receipt Date: 20121126
  Transmission Date: 20130627
  Serious: Yes (Life-Threatening, Hospitalization, Other)
  Sender: FDA-Public Use
  Company Number: None

PATIENT
  Age: 60 Year
  Sex: Male
  Weight: 92.3 kg

DRUGS (2)
  1. ATRIPLA [Suspect]
     Indication: HIV INFECTION
     Dosage: 1 tablet QPM PO
     Route: 048
     Dates: start: 20111120, end: 20121120
  2. PRADAXA [Suspect]
     Indication: ATRIAL FIBRILLATION
     Dosage: 1 tablet BID po
     Route: 048
     Dates: start: 20121101, end: 20121112

REACTIONS (3)
  - Drug interaction [None]
  - Drug effect decreased [None]
  - Ischaemic stroke [None]
